FAERS Safety Report 9304419 (Version 1)
Quarter: 2013Q2

REPORT INFORMATION
  Report Type: Report from Study
  Country: US (occurrence: US)
  Receive Date: 20130522
  Receipt Date: 20130522
  Transmission Date: 20140414
  Serious: Yes (Other)
  Sender: FDA-Public Use
  Company Number: US-US-EMD SERONO, INC.-7212280

PATIENT
  Sex: Female
  Weight: 74 kg

DRUGS (1)
  1. REBIF [Suspect]
     Indication: MULTIPLE SCLEROSIS
     Route: 058
     Dates: start: 2011

REACTIONS (13)
  - Suicidal ideation [Recovered/Resolved]
  - Depression [Recovering/Resolving]
  - Balance disorder [Not Recovered/Not Resolved]
  - Hemiparesis [Not Recovered/Not Resolved]
  - Balance disorder [Not Recovered/Not Resolved]
  - Orthostatic hypotension [Not Recovered/Not Resolved]
  - Ataxia [Unknown]
  - Fall [Unknown]
  - Weight decreased [Unknown]
  - Anxiety [Recovering/Resolving]
  - Hypertension [Unknown]
  - Gait disturbance [Unknown]
  - Gait disturbance [Unknown]
